FAERS Safety Report 7941117-4 (Version None)
Quarter: 2011Q4

REPORT INFORMATION
  Report Type: 
  Country: None (occurrence: None)
  Receive Date: 20111122
  Receipt Date: 20111108
  Transmission Date: 20120403
  Serious: No
  Sender: FDA-Public Use
  Company Number: PHHY2011JP85141

PATIENT
  Age: 72 Year
  Sex: Male
  Weight: 72 kg

DRUGS (1)
  1. VISUDYNE [Suspect]
     Indication: AGE-RELATED MACULAR DEGENERATION
     Dosage: 5.4 ML ONCE IV
     Route: 042
     Dates: start: 20110623, end: 20110623

REACTIONS (5)
  - ARTHRALGIA [None]
  - PAIN [None]
  - MUSCULOSKELETAL STIFFNESS [None]
  - MUSCULOSKELETAL PAIN [None]
  - MYALGIA [None]
